FAERS Safety Report 8462265-9 (Version None)
Quarter: 2012Q2

REPORT INFORMATION
  Report Type: 
  Country: None (occurrence: None)
  Receive Date: 20120619
  Receipt Date: 20120619
  Transmission Date: 20120825
  Serious: No
  Sender: FDA-Public Use
  Company Number: None

PATIENT
  Age: 45 Year
  Sex: Female
  Weight: 88.4514 kg

DRUGS (1)
  1. INTROVALE [Suspect]
     Dosage: 1 DAILY PO MANY YEARS
     Route: 048

REACTIONS (2)
  - DRUG DISPENSING ERROR [None]
  - PRODUCT QUALITY ISSUE [None]
